FAERS Safety Report 23135964 (Version 1)
Quarter: 2023Q4

REPORT INFORMATION
  Report Type: Spontaneous
  Country: US (occurrence: US)
  Receive Date: 20231101
  Receipt Date: 20231101
  Transmission Date: 20240109
  Serious: No
  Sender: FDA-Public Use
  Company Number: US-TEVA-2023-US-2938518

PATIENT

DRUGS (2)
  1. AMOXICILLIN [Suspect]
     Active Substance: AMOXICILLIN
     Indication: Product used for unknown indication
     Route: 065
  2. HYDRALAZINE [Suspect]
     Active Substance: HYDRALAZINE HYDROCHLORIDE
     Indication: Product used for unknown indication
     Route: 065

REACTIONS (7)
  - Blood pressure abnormal [Unknown]
  - Decreased appetite [Unknown]
  - Asthenia [Unknown]
  - Illness [Unknown]
  - Dizziness [Unknown]
  - Swelling face [Unknown]
  - Dysphagia [Unknown]

NARRATIVE: CASE EVENT DATE: 20230101
